FAERS Safety Report 9629895 (Version 2)
Quarter: 2013Q4

REPORT INFORMATION
  Report Type: Spontaneous
  Country: US (occurrence: US)
  Receive Date: 20131017
  Receipt Date: 20131209
  Transmission Date: 20140711
  Serious: Yes (Other)
  Sender: FDA-Public Use
  Company Number: US-PERRIGO-13US010436

PATIENT
  Age: 30 Year
  Sex: Female
  Weight: 92.97 kg

DRUGS (2)
  1. ACETAMINOPHEN-ASPIRIN-CAFFEINE 374 [Suspect]
     Indication: MIGRAINE
     Dosage: 2 CAPLETS, 1030
     Route: 048
     Dates: start: 20131006, end: 20131006
  2. ACETAMINOPHEN-ASPIRIN-CAFFEINE 374 [Suspect]
     Dosage: 2 CAPLETS, 1300
     Route: 048
     Dates: start: 20131006, end: 20131006

REACTIONS (5)
  - Gait disturbance [Unknown]
  - Hypoaesthesia [Unknown]
  - Headache [Unknown]
  - Nausea [Unknown]
  - Incorrect dose administered [Unknown]
